FAERS Safety Report 22533796 (Version 1)
Quarter: 2023Q2

REPORT INFORMATION
  Report Type: Other
  Country: FR (occurrence: FR)
  Receive Date: 20230608
  Receipt Date: 20230608
  Transmission Date: 20230722
  Serious: Yes (Hospitalization)
  Sender: FDA-Public Use
  Company Number: None

PATIENT

DRUGS (4)
  1. GABAPENTIN [Suspect]
     Active Substance: GABAPENTIN
     Indication: Product used for unknown indication
     Dosage: 900 MILLIGRAM
     Route: 048
     Dates: start: 20230425, end: 20230510
  2. CIPROFLOXACIN [Suspect]
     Active Substance: CIPROFLOXACIN
     Indication: Osteitis
     Dosage: 500 MILLIGRAM
     Route: 048
     Dates: start: 20230419, end: 20230510
  3. ILOPROST TROMETHAMINE [Suspect]
     Active Substance: ILOPROST TROMETHAMINE
     Indication: Peripheral arterial occlusive disease
     Dosage: 50 MICROGRAM
     Route: 042
     Dates: start: 20230420, end: 20230510
  4. OXYCODONE HYDROCHLORIDE [Suspect]
     Active Substance: OXYCODONE HYDROCHLORIDE
     Indication: Product used for unknown indication
     Dosage: UNK
     Route: 048
     Dates: start: 20230413, end: 20230510

REACTIONS (1)
  - Encephalopathy [Recovered/Resolved]

NARRATIVE: CASE EVENT DATE: 20230508
